FAERS Safety Report 9515768 (Version 3)
Quarter: 2013Q4

REPORT INFORMATION
  Report Type: Spontaneous
  Country: US (occurrence: US)
  Receive Date: 20130911
  Receipt Date: 20131112
  Transmission Date: 20140711
  Serious: Yes (Other)
  Sender: FDA-Public Use
  Company Number: US-PFIZER INC-2013259930

PATIENT
  Age: 73 Year
  Sex: Female
  Weight: 55.78 kg

DRUGS (3)
  1. NEURONTIN [Suspect]
     Indication: DIABETIC NEUROPATHY
     Dosage: 600 MG, 3X/DAY
     Route: 048
  2. NEURONTIN [Suspect]
     Dosage: 600 MG, 2X/DAY
     Route: 048
  3. NORVASC [Concomitant]
     Dosage: UNK

REACTIONS (5)
  - Off label use [Unknown]
  - Drug dose omission [Unknown]
  - Renal disorder [Unknown]
  - Weight decreased [Unknown]
  - Pain [Unknown]
